FAERS Safety Report 13046115 (Version 1)
Quarter: 2016Q4

REPORT INFORMATION
  Report Type: Spontaneous
  Country: PT (occurrence: PT)
  Receive Date: 20161220
  Receipt Date: 20161220
  Transmission Date: 20170207
  Serious: Yes (Other)
  Sender: FDA-Public Use
  Company Number: PT-TEVA-718568ISR

PATIENT
  Age: 50 Year
  Sex: Female
  Weight: 163 kg

DRUGS (3)
  1. ANASTROZOL TEVA [Suspect]
     Active Substance: ANASTROZOLE
     Indication: BREAST CANCER
     Dosage: 1 MILLIGRAM DAILY;
     Route: 048
     Dates: start: 20151009
  2. GLUCOSAMINA [Concomitant]
  3. OMEPRAZOL [Concomitant]
     Active Substance: OMEPRAZOLE

REACTIONS (4)
  - Synovitis [Not Recovered/Not Resolved]
  - Bone pain [Not Recovered/Not Resolved]
  - Activated partial thromboplastin time abnormal [Not Recovered/Not Resolved]
  - Hypercholesterolaemia [Not Recovered/Not Resolved]

NARRATIVE: CASE EVENT DATE: 201510
